FAERS Safety Report 21613703 (Version 2)
Quarter: 2024Q2

REPORT INFORMATION
  Report Type: Spontaneous
  Country: GR (occurrence: GR)
  Receive Date: 20221118
  Receipt Date: 20240613
  Transmission Date: 20240715
  Serious: Yes (Hospitalization, Other)
  Sender: FDA-Public Use
  Company Number: GR-TEVA-2022-GR-2828217

PATIENT
  Age: 42 Year
  Sex: Female

DRUGS (6)
  1. PROGESTERONE [Suspect]
     Active Substance: PROGESTERONE
     Indication: In vitro fertilisation
     Route: 065
  2. LEVONORGESTREL [Suspect]
     Active Substance: LEVONORGESTREL
     Indication: In vitro fertilisation
     Route: 065
  3. METHYLPREDNISOLONE [Suspect]
     Active Substance: METHYLPREDNISOLONE
     Indication: In vitro fertilisation
     Route: 065
  4. ESTRADIOL [Suspect]
     Active Substance: ESTRADIOL
     Indication: In vitro fertilisation
     Route: 065
  5. UROFOLLITROPIN [Concomitant]
     Active Substance: UROFOLLITROPIN
     Indication: In vitro fertilisation
     Dosage: DOSAGE TEXT: FOR 12 DAYS
     Route: 065
  6. GANIRELIX [Concomitant]
     Active Substance: GANIRELIX
     Indication: In vitro fertilisation
     Dosage: DOSAGE TEXT: FOR 6 DAYS PRIOR TO IVF
     Route: 065

REACTIONS (2)
  - Hypertriglyceridaemia [Unknown]
  - Pancreatitis acute [Unknown]
